FAERS Safety Report 12162328 (Version 1)
Quarter: 2016Q1

REPORT INFORMATION
  Report Type: Spontaneous
  Country: US (occurrence: None)
  Receive Date: 20160308
  Receipt Date: 20160308
  Transmission Date: 20160526
  Serious: Yes (Hospitalization)
  Sender: FDA-Public Use
  Company Number: None

PATIENT
  Age: 80 Year
  Sex: Male
  Weight: 105.5 kg

DRUGS (12)
  1. WARFARIN 5MG [Suspect]
     Active Substance: WARFARIN
     Indication: ATRIAL FIBRILLATION
     Dosage: CHRONIC
     Route: 048
  2. LANTUS [Concomitant]
     Active Substance: INSULIN GLARGINE
  3. DYAZIDE [Concomitant]
     Active Substance: HYDROCHLOROTHIAZIDE\TRIAMTERENE
  4. EFFEXOR [Concomitant]
     Active Substance: VENLAFAXINE HYDROCHLORIDE
  5. XALATAN [Concomitant]
     Active Substance: LATANOPROST
  6. ATENOLOL. [Concomitant]
     Active Substance: ATENOLOL
  7. LIPITOR [Concomitant]
     Active Substance: ATORVASTATIN CALCIUM
  8. WARFARIN [Suspect]
     Active Substance: WARFARIN
     Indication: ATRIAL FIBRILLATION
     Dosage: 2.5MG MWF PM PO?CHRONIC
     Route: 048
  9. LYRICA [Concomitant]
     Active Substance: PREGABALIN
  10. COZAAR [Concomitant]
     Active Substance: LOSARTAN POTASSIUM
  11. NAMENDA [Concomitant]
     Active Substance: MEMANTINE HYDROCHLORIDE
  12. THYROXI [Concomitant]

REACTIONS (2)
  - Encephalopathy [None]
  - Subdural haematoma [None]

NARRATIVE: CASE EVENT DATE: 20151019
